FAERS Safety Report 7134263-9 (Version None)
Quarter: 2010Q4

REPORT INFORMATION
  Report Type: 
  Country: None (occurrence: None)
  Receive Date: 20101117
  Receipt Date: 20101105
  Transmission Date: 20110411
  Serious: Yes (Disabling)
  Sender: FDA-Public Use
  Company Number: TPG2010A00632

PATIENT
  Age: 62 Year
  Sex: Male

DRUGS (3)
  1. COMPETACT (PIOGLITAZONE HYDROCHLORIDE,METFORMIN HYDROCHLORIDE) [Suspect]
     Indication: DIABETES MELLITUS
     Dosage: PER ORAL
     Route: 048
     Dates: start: 20101012
  2. TEGRETOL [Concomitant]
  3. MAGNESIUM VERIA (MAGNESIUM HYDROGEN ASPARTATE) [Concomitant]

REACTIONS (5)
  - ERECTILE DYSFUNCTION [None]
  - MUSCLE SPASMS [None]
  - PAIN [None]
  - PAIN IN EXTREMITY [None]
  - PARAESTHESIA [None]
